FAERS Safety Report 8375557 (Version 2)
Quarter: 2013Q1

REPORT INFORMATION
  Report Type: Report from Study
  Country: US (occurrence: US)
  Receive Date: 20120129
  Receipt Date: 20130129
  Transmission Date: 20140127
  Serious: No
  Sender: FDA-Public Use
  Company Number: US-ABBOTT-11P-163-0887159-00

PATIENT
  Age: 45 Year
  Sex: Female

DRUGS (6)
  1. HUMIRA 40 MG/0.8 ML PEN [Suspect]
     Indication: ANKYLOSING SPONDYLITIS
     Dates: start: 20111123
  2. HUMIRA 40 MG/0.8 ML PEN [Suspect]
     Route: 058
  3. LODINE XL [Concomitant]
     Indication: INFLAMMATION
  4. ZYRTEC [Concomitant]
     Indication: HYPERSENSITIVITY
  5. ATENOLOL [Concomitant]
     Indication: HEART RATE INCREASED
  6. FLEXERIL [Concomitant]
     Indication: MUSCULOSKELETAL STIFFNESS

REACTIONS (5)
  - Oropharyngeal pain [Recovered/Resolved]
  - Pain [Recovered/Resolved]
  - Oropharyngeal pain [Recovered/Resolved]
  - Cough [Recovered/Resolved]
  - Throat irritation [Unknown]
